FAERS Safety Report 20489656 (Version 5)
Quarter: 2022Q2

REPORT INFORMATION
  Report Type: Spontaneous
  Country: US (occurrence: US)
  Receive Date: 20220218
  Receipt Date: 20220422
  Transmission Date: 20220721
  Serious: Yes (Hospitalization, Other)
  Sender: FDA-Public Use
  Company Number: US-PFIZER INC-202200285437

PATIENT
  Age: 88 Year
  Sex: Female
  Weight: 61.224 kg

DRUGS (2)
  1. PREMARIN [Suspect]
     Active Substance: ESTROGENS, CONJUGATED
     Indication: Cystitis
     Dosage: UNK
  2. PREMARIN [Suspect]
     Active Substance: ESTROGENS, CONJUGATED
     Dosage: UNK, (SMALL NICKLE CREAM SIZE EVERY 3 DAYS)
     Dates: start: 20220207

REACTIONS (8)
  - Neuropathy peripheral [Recovered/Resolved]
  - Spinal fracture [Recovered/Resolved]
  - Lymphadenopathy [Recovered/Resolved]
  - Knee operation [Recovered/Resolved]
  - Rash [Recovered/Resolved]
  - Off label use [Unknown]
  - Alopecia [Recovering/Resolving]
  - Full blood count abnormal [Recovered/Resolved]
